FAERS Safety Report 5248929-9 (Version None)
Quarter: 2007Q1

REPORT INFORMATION
  Report Type: 
  Country: None (occurrence: None)
  Receive Date: 20070228
  Receipt Date: 20061117
  Transmission Date: 20070707
  Serious: No
  Sender: FDA-Public Use
  Company Number: US-GLAXOSMITHKLINE-A0626594A

PATIENT
  Age: 43 Year
  Sex: Male
  Weight: 60.5 kg

DRUGS (1)
  1. ABACAVIR [Suspect]
     Dates: start: 20061001, end: 20061022

REACTIONS (4)
  - COUGH [None]
  - INFLUENZA LIKE ILLNESS [None]
  - PYREXIA [None]
  - RASH [None]
